FAERS Safety Report 9249865 (Version 1)
Quarter: 2013Q2

REPORT INFORMATION
  Report Type: Spontaneous
  Country: US (occurrence: US)
  Receive Date: 20130423
  Receipt Date: 20130423
  Transmission Date: 20140414
  Serious: Yes (Other)
  Sender: FDA-Public Use
  Company Number: US-TEVA-400049USA

PATIENT
  Sex: Male

DRUGS (1)
  1. AMLODIPINE W/BENAZEPRIL [Suspect]
     Indication: BLOOD PRESSURE INCREASED
     Dosage: 10/20 MG

REACTIONS (6)
  - Coeliac disease [Unknown]
  - Milk allergy [Unknown]
  - Diarrhoea [Unknown]
  - Rash [Unknown]
  - Pigmentation disorder [Unknown]
  - Lactose intolerance [Unknown]
